FAERS Safety Report 8615882-7 (Version None)
Quarter: 2012Q3

REPORT INFORMATION
  Report Type: 
  Country: None (occurrence: None)
  Receive Date: 20120823
  Receipt Date: 20120820
  Transmission Date: 20120928
  Serious: Yes (Hospitalization, Other)
  Sender: FDA-Public Use
  Company Number: BR-ROCHE-1016986

PATIENT
  Sex: Female
  Weight: 66.8 kg

DRUGS (12)
  1. LACTULOSE [Concomitant]
     Indication: CONSTIPATION PROPHYLAXIS
     Dates: start: 20111128, end: 20111130
  2. BENADRYL [Concomitant]
     Indication: TREMOR
     Dates: start: 20111122, end: 20111122
  3. LORATADINE [Concomitant]
     Dates: start: 20111001, end: 20111127
  4. DIPYRONE INJ [Concomitant]
     Indication: PAIN PROPHYLAXIS
     Dates: start: 20111127, end: 20111128
  5. CODEINE [Concomitant]
     Indication: CHEST PAIN
     Dates: start: 20110701, end: 20111031
  6. TRASTUZUMAB EMTANSINE [Suspect]
     Indication: BREAST CANCER METASTATIC
     Dosage: LAST DOSE PRIOR TO SAE WAS 02/MAR/2012
     Route: 042
     Dates: start: 20111122
  7. HYDROCORTISONE [Concomitant]
     Indication: TREMOR
     Dates: start: 20111122, end: 20111122
  8. DEXAMETHASONE [Concomitant]
     Dates: start: 20111127, end: 20111128
  9. TRANEXAMIC ACID [Concomitant]
     Dates: start: 20111127, end: 20111128
  10. METOCLOPRAMIDE [Concomitant]
     Indication: PROPHYLAXIS OF NAUSEA AND VOMITING
     Dates: start: 20111127, end: 20111128
  11. OMEPRAZOLE [Concomitant]
     Indication: PROPHYLAXIS AGAINST GASTROINTESTINAL ULCER
     Dates: start: 20111127, end: 20111130
  12. PERTUZUMAB [Suspect]
     Indication: BREAST CANCER METASTATIC
     Route: 042
     Dates: start: 20111122

REACTIONS (4)
  - HEPATIC ENZYME INCREASED [None]
  - VOMITING [None]
  - THROMBOCYTOPENIA [None]
  - HAEMOPTYSIS [None]
